FAERS Safety Report 6031363-1 (Version None)
Quarter: 2009Q1

REPORT INFORMATION
  Report Type: 
  Country: None (occurrence: None)
  Receive Date: 20090108
  Receipt Date: 20081230
  Transmission Date: 20090719
  Serious: Yes (Other)
  Sender: FDA-Public Use
  Company Number: US-JNJCH-2009000076

PATIENT
  Age: 8 Year
  Sex: Male
  Weight: 21.3 kg

DRUGS (1)
  1. SUDACARE SHOWER SOOTHERS [Suspect]
     Indication: NASOPHARYNGITIS
     Dosage: TEXT:1 TABLET ONCE
     Route: 061
     Dates: start: 20081229, end: 20081229

REACTIONS (3)
  - BLISTER [None]
  - BURNS SECOND DEGREE [None]
  - MEDICATION ERROR [None]
